FAERS Safety Report 5190741-3 (Version None)
Quarter: 2006Q4

REPORT INFORMATION
  Report Type: 
  Country: None (occurrence: None)
  Receive Date: 20061215
  Receipt Date: 20061130
  Transmission Date: 20070319
  Serious: Yes (Life-Threatening, Hospitalization)
  Sender: FDA-Public Use
  Company Number: DSA_29106_2006

PATIENT
  Age: 75 Year
  Sex: Female

DRUGS (11)
  1. ENALAPRIL MALEATE [Suspect]
     Dosage: 20 MG Q DAY UNK
  2. METFORMIN HCL [Suspect]
     Indication: DIABETES MELLITUS NON-INSULIN-DEPENDENT
     Dosage: 2 G Q DAY UNK
  3. GLIPIZIDE [Concomitant]
  4. WARFARIN SODIUM [Concomitant]
  5. DIURETICS [Concomitant]
  6. THYROXIN [Concomitant]
  7. CLANZAPINE [Concomitant]
  8. ATORVASTATIN CALCIUM [Concomitant]
  9. NORADRENALINE [Concomitant]
  10. TRIBONAT [Concomitant]
  11. CEPHOTAXIM [Concomitant]

REACTIONS (17)
  - AGITATION [None]
  - BLOOD GLUCOSE DECREASED [None]
  - BLOOD PRESSURE SYSTOLIC DECREASED [None]
  - CARDIOPULMONARY FAILURE [None]
  - CARDIOVASCULAR DISORDER [None]
  - DEHYDRATION [None]
  - DISORIENTATION [None]
  - HAEMODIALYSIS [None]
  - HEART RATE INCREASED [None]
  - HYPERVENTILATION [None]
  - HYPOTENSION [None]
  - HYPOTHERMIA [None]
  - LETHARGY [None]
  - METABOLIC ACIDOSIS [None]
  - ORAL INTAKE REDUCED [None]
  - RENAL FAILURE ACUTE [None]
  - SOMNOLENCE [None]
